FAERS Safety Report 23601611 (Version 1)
Quarter: 2024Q1

REPORT INFORMATION
  Report Type: Spontaneous
  Country: DE (occurrence: DE)
  Receive Date: 20240306
  Receipt Date: 20240306
  Transmission Date: 20240410
  Serious: Yes (Other)
  Sender: FDA-Public Use
  Company Number: DE-SANDOZ-SDZ2024DE023590

PATIENT
  Age: 79 Year
  Sex: Male

DRUGS (1)
  1. TAMSULOSIN HYDROCHLORIDE [Suspect]
     Active Substance: TAMSULOSIN HYDROCHLORIDE
     Indication: Product used for unknown indication
     Dosage: ONE TABLET A DAY FOR SIX MONTHS
     Route: 065

REACTIONS (5)
  - Syncope [Unknown]
  - Seizure [Recovering/Resolving]
  - Fall [Unknown]
  - Cerebral disorder [Unknown]
  - Asthenia [Unknown]
